FAERS Safety Report 11059852 (Version 4)
Quarter: 2017Q3

REPORT INFORMATION
  Report Type: Report from Study
  Country: FR (occurrence: FR)
  Receive Date: 20150423
  Receipt Date: 20170914
  Transmission Date: 20171127
  Serious: Yes (Hospitalization)
  Sender: FDA-Public Use
  Company Number: PHHO2015FR001030

PATIENT
  Age: 67 Year
  Sex: Female
  Weight: 73 kg

DRUGS (7)
  1. CEFUROXIME. [Concomitant]
     Active Substance: CEFUROXIME
     Indication: INFECTION PROPHYLAXIS
     Dosage: 2 DF (2 CAP)
     Route: 048
     Dates: start: 20140624
  2. AMN107 [Suspect]
     Active Substance: NILOTINIB
     Indication: ACUTE LYMPHOCYTIC LEUKAEMIA
     Dosage: 400 MG, BID
     Route: 048
     Dates: start: 20140704
  3. ZELITREX [Concomitant]
     Active Substance: VALACYCLOVIR HYDROCHLORIDE
     Indication: INFECTION PROPHYLAXIS
     Dosage: 2 DF (500) (2/J)
     Route: 048
     Dates: start: 20140624
  4. AMOXICILLIN. [Concomitant]
     Active Substance: AMOXICILLIN
     Indication: INFECTION PROPHYLAXIS
     Dosage: 2 DF, (500 MG)
     Route: 048
     Dates: start: 20150107, end: 20150119
  5. CYTARABINE. [Concomitant]
     Active Substance: CYTARABINE
     Indication: ACUTE LYMPHOCYTIC LEUKAEMIA
     Dosage: 1920 MG, UNK
     Route: 042
     Dates: start: 20140925
  6. BACTRIM [Concomitant]
     Active Substance: SULFAMETHOXAZOLE\TRIMETHOPRIM
     Indication: INFECTION PROPHYLAXIS
     Dosage: 1 DF (1 CAP)
     Route: 048
     Dates: start: 20140624
  7. ARACYTINE [Suspect]
     Active Substance: CYTARABINE
     Indication: PROPHYLAXIS
     Dosage: UNK
     Route: 037
     Dates: start: 20150306

REACTIONS (3)
  - Febrile bone marrow aplasia [Recovered/Resolved]
  - Febrile bone marrow aplasia [Recovered/Resolved]
  - Febrile bone marrow aplasia [Recovered/Resolved]

NARRATIVE: CASE EVENT DATE: 20141010
